FAERS Safety Report 8583568-3 (Version None)
Quarter: 2012Q3

REPORT INFORMATION
  Report Type: 
  Country: None (occurrence: None)
  Receive Date: 20120809
  Receipt Date: 20120803
  Transmission Date: 20120928
  Serious: Yes (Death)
  Sender: FDA-Public Use
  Company Number: US-AMGEN-USASP2012048922

PATIENT
  Age: 65 Year
  Sex: Male

DRUGS (2)
  1. SENSIPAR [Suspect]
     Indication: BLOOD CALCIUM
     Dosage: UNK
     Route: 048
     Dates: start: 20110101, end: 20120201
  2. SENSIPAR [Suspect]
     Indication: BLOOD PHOSPHORUS

REACTIONS (1)
  - DEATH [None]
